FAERS Safety Report 23779103 (Version 1)
Quarter: 2024Q2

REPORT INFORMATION
  Report Type: Report from Study
  Country: US (occurrence: US)
  Receive Date: 20240424
  Receipt Date: 20240424
  Transmission Date: 20240715
  Serious: Yes (Death, Hospitalization)
  Sender: FDA-Public Use
  Company Number: US-BAYER-2024A058468

PATIENT
  Age: 73 Year

DRUGS (2)
  1. ASPIRIN [Interacting]
     Active Substance: ASPIRIN
     Dosage: 1 MG/KG, BID
  2. ENOXAPARIN [Interacting]
     Active Substance: ENOXAPARIN
     Dosage: 1 MG/KG, BID

REACTIONS (3)
  - Epistaxis [Fatal]
  - Gastrointestinal haemorrhage [Fatal]
  - Labelled drug-drug interaction issue [None]
